FAERS Safety Report 13817330 (Version 1)
Quarter: 2017Q3

REPORT INFORMATION
  Report Type: Spontaneous
  Country: US (occurrence: US)
  Receive Date: 20170731
  Receipt Date: 20170731
  Transmission Date: 20171127
  Serious: No
  Sender: FDA-Public Use
  Company Number: US-LEXICON PHARMACEUTICALS, INC-17-1606-00525

PATIENT
  Sex: Female

DRUGS (1)
  1. TELOTRISTAT ETHYL [Suspect]
     Active Substance: TELOTRISTAT ETHYL
     Indication: CARCINOID TUMOUR
     Route: 048
     Dates: start: 2017

REACTIONS (3)
  - Chemotherapy [Not Recovered/Not Resolved]
  - Hepatic embolisation [Recovering/Resolving]
  - Bowel movement irregularity [Recovering/Resolving]

NARRATIVE: CASE EVENT DATE: 2017
